FAERS Safety Report 22900783 (Version 4)
Quarter: 2024Q3

REPORT INFORMATION
  Report Type: Report from Study
  Country: PT (occurrence: KR)
  Receive Date: 20230904
  Receipt Date: 20240925
  Transmission Date: 20241016
  Serious: Yes (Hospitalization, Other)
  Sender: SUNOVION
  Company Number: KR-BIAL-BIAL-15341

PATIENT

DRUGS (40)
  1. ESLICARBAZEPINE ACETATE [Suspect]
     Active Substance: ESLICARBAZEPINE ACETATE
     Indication: Epilepsy
     Dosage: 150 MILLIGRAM, QD
     Route: 048
     Dates: start: 20230222, end: 20230309
  2. ESLICARBAZEPINE ACETATE [Suspect]
     Active Substance: ESLICARBAZEPINE ACETATE
     Dosage: 200 MILLIGRAM, QD
     Route: 048
     Dates: start: 20230310, end: 20230327
  3. ESLICARBAZEPINE ACETATE [Suspect]
     Active Substance: ESLICARBAZEPINE ACETATE
     Dosage: 250 MILLIGRAM, QD
     Route: 048
     Dates: start: 20230328, end: 20230508
  4. ESLICARBAZEPINE ACETATE [Suspect]
     Active Substance: ESLICARBAZEPINE ACETATE
     Dosage: 300 MILLIGRAM, QD
     Route: 048
     Dates: start: 20230509
  5. DIAZEPAM [Concomitant]
     Active Substance: DIAZEPAM
     Indication: Epilepsy
     Dosage: 1 DOSAGE FORM, QD
     Route: 048
     Dates: start: 20230222, end: 20230303
  6. DIAZEPAM [Concomitant]
     Active Substance: DIAZEPAM
     Dosage: 1 DOSAGE FORM, QD
     Route: 048
     Dates: start: 20230330, end: 20230429
  7. Dulackhan easy [Concomitant]
     Indication: Constipation prophylaxis
     Dosage: 1 DOSAGE FORM, QD
     Route: 048
     Dates: start: 20230222, end: 20230222
  8. POLYETHYLENE GLYCOL 4000 [Concomitant]
     Active Substance: POLYETHYLENE GLYCOL 4000
     Indication: Constipation prophylaxis
     Dosage: 1 DOSAGE FORM, QD
     Route: 048
     Dates: start: 20230222
  9. RAMNOS [Concomitant]
     Indication: Prophylaxis
     Dosage: 1 DOSAGE FORM, BID
     Route: 048
     Dates: start: 20230222
  10. DEFLAZACORT [Concomitant]
     Active Substance: DEFLAZACORT
     Indication: Chronic kidney disease
     Dosage: 0.5 DOSAGE FORM, BID
     Route: 048
     Dates: start: 20230222, end: 20230723
  11. DEFLAZACORT [Concomitant]
     Active Substance: DEFLAZACORT
     Dosage: 0.75 DOSAGE FORM, BID
     Route: 048
     Dates: start: 20230724
  12. GASTER [Concomitant]
     Active Substance: FAMOTIDINE
     Indication: Prophylaxis
     Dosage: 0.5 DOSAGE FORM, BID
     Route: 048
     Dates: start: 20230222
  13. BEECOM [Concomitant]
     Indication: Prophylaxis
     Dosage: 1 DOSAGE FORM, BID
     Route: 048
     Dates: start: 20230222
  14. THIAMINE HYDROCHLORIDE [Concomitant]
     Active Substance: THIAMINE HYDROCHLORIDE
     Indication: Prophylaxis
     Dosage: 2 DOSAGE FORM, BID
     Route: 048
     Dates: start: 20230222
  15. DECAQUINON [Concomitant]
     Indication: MELAS syndrome
     Dosage: 4 DOSAGE FORM, TID
     Route: 048
     Dates: start: 20230222
  16. TASNA [Concomitant]
     Indication: Lactic acidosis
     Dosage: 1 DOSAGE FORM, TID
     Route: 048
     Dates: start: 20230222
  17. FYCOMPA [Concomitant]
     Active Substance: PERAMPANEL
     Indication: Epilepsy
     Dosage: 1 DOSAGE FORM, QD
     Route: 048
     Dates: start: 20230222
  18. L-CARN [Concomitant]
     Indication: Prophylaxis
     Dosage: 2 MILLILITER, BID
     Route: 048
     Dates: start: 20230222
  19. Ferrum kid [Concomitant]
     Indication: MELAS syndrome
     Dosage: 1 MILLILITER, BID
     Route: 048
     Dates: start: 20230222, end: 20230424
  20. D3 BASE [Concomitant]
     Indication: Vitamin D deficiency
     Dosage: 4 DROP, QD
     Route: 048
     Dates: start: 20230222
  21. Circatonin pr [Concomitant]
     Indication: Induction of anaesthesia
     Dosage: 3 DOSAGE FORM, BID
     Route: 048
     Dates: start: 20230328, end: 20230328
  22. PROPRANOLOL HYDROCHLORIDE [Concomitant]
     Active Substance: PROPRANOLOL HYDROCHLORIDE
     Indication: MELAS syndrome
     Dosage: 0.7 DOSAGE FORM, QD
     Route: 048
     Dates: start: 20230222
  23. BOLGRE [Concomitant]
     Indication: MELAS syndrome
     Dosage: 10 MILLILITER, BID
     Route: 048
     Dates: start: 20230425
  24. POCRAL [Concomitant]
     Indication: Induction of anaesthesia
     Dosage: 2 DOSAGE FORM, QD
     Route: 048
     Dates: start: 20230626, end: 20230626
  25. KEPPRA [Concomitant]
     Active Substance: LEVETIRACETAM
     Indication: Epilepsy
     Dosage: 0.6 DOSAGE FORM, QD
     Route: 042
     Dates: start: 20230630, end: 20230630
  26. KEPPRA [Concomitant]
     Active Substance: LEVETIRACETAM
     Indication: Epilepsy
     Dosage: 1 MILLILITER, BID
     Route: 048
     Dates: start: 20230630
  27. PYRIDOXINE SINIL [Concomitant]
     Indication: Prophylaxis
     Dosage: 0.5 DOSAGE FORM, BID
     Route: 048
     Dates: start: 20230630
  28. PREDNISOLONE [Concomitant]
     Active Substance: PREDNISOLONE
     Indication: Chronic kidney disease
     Dosage: 1 DOSAGE FORM, TID
     Route: 048
     Dates: start: 20230704
  29. LANSOPRAZOLE [Concomitant]
     Active Substance: LANSOPRAZOLE
     Indication: Gastrointestinal disorder prophylaxis
     Dosage: 1 DOSAGE FORM, QD
     Route: 048
     Dates: start: 20230908
  30. Inno.n dopamine hcl premix [Concomitant]
     Indication: Prophylaxis
     Dosage: 1 DOSAGE FORM, QD
     Route: 042
     Dates: start: 20230508, end: 20230509
  31. DEXAMETHASONE [Concomitant]
     Active Substance: DEXAMETHASONE
     Indication: Prophylaxis
     Dosage: 0.4 DOSAGE FORM, 4X / DAY
     Route: 042
     Dates: start: 20230626, end: 20230705
  32. GC ARGININE [Concomitant]
     Indication: Prophylaxis
     Dosage: 0.5 DOSAGE FORM, BID
     Route: 042
     Dates: start: 20230626, end: 20230705
  33. ADENO P [Concomitant]
     Indication: Prophylaxis
     Dosage: 0.5 DOSAGE FORM, BID
     Route: 042
     Dates: start: 20230626, end: 20230705
  34. JEIL ASCORBIC ACID [Concomitant]
     Indication: Prophylaxis
     Dosage: 0.5 DOSAGE FORM, BID
     Route: 040
     Dates: start: 20230627, end: 20230705
  35. BEECOM HEXA [Concomitant]
     Indication: Prophylaxis
     Dosage: 0.5 DOSAGE FORM, BID
     Route: 042
     Dates: start: 20230627, end: 20230705
  36. L-CARN [Concomitant]
     Indication: Prophylaxis
     Dosage: 0.5 DOSAGE FORM, BID
     Route: 042
     Dates: start: 20230627, end: 20230705
  37. THIAMINE HYDROCHLORIDE [Concomitant]
     Active Substance: THIAMINE HYDROCHLORIDE
     Indication: Prophylaxis
     Dosage: 1 DOSAGE FORM, BID
     Route: 042
     Dates: start: 20230627, end: 20230705
  38. CYANOCOBALAMIN\PYRIDOXINE HYDROCHLORIDE\THIAMINE [Concomitant]
     Active Substance: CYANOCOBALAMIN\PYRIDOXINE HYDROCHLORIDE\THIAMINE
     Indication: Prophylaxis
     Dosage: 1 DOSAGE FORM, BID
     Route: 048
     Dates: start: 20230806, end: 20230810
  39. Venoferrum [Concomitant]
     Indication: Prophylaxis
     Dosage: 1 DOSAGE FORM, QD
     Route: 042
     Dates: start: 20230807, end: 20230807
  40. GC ARGININE [Concomitant]
     Indication: Prophylaxis
     Dosage: 0.5 DOSAGE FORM, BID
     Route: 042
     Dates: start: 20230805, end: 20230809

REACTIONS (4)
  - Epilepsy [Recovered/Resolved]
  - Vomiting [Recovered/Resolved]
  - Visual field defect [Recovered/Resolved]
  - Underdose [Not Recovered/Not Resolved]

NARRATIVE: CASE EVENT DATE: 20230301
